FAERS Safety Report 15154672 (Version 2)
Quarter: 2019Q2

REPORT INFORMATION
  Report Type: Spontaneous
  Country: US (occurrence: US)
  Receive Date: 20180717
  Receipt Date: 20190524
  Transmission Date: 20190711
  Serious: No
  Sender: FDA-Public Use
  Company Number: US-APOTEX-2018AP008975

PATIENT
  Age: 50 Year
  Sex: Female

DRUGS (7)
  1. ATORVASTATIN CALCIUM. [Interacting]
     Active Substance: ATORVASTATIN CALCIUM
     Indication: CEREBROVASCULAR ACCIDENT
     Dosage: 80 MG, UNK
     Route: 048
     Dates: start: 20170504, end: 20180303
  2. BIAXIN [Concomitant]
     Active Substance: CLARITHROMYCIN
     Dosage: 500 MG, UNK
     Route: 065
  3. PLAVIX [Concomitant]
     Active Substance: CLOPIDOGREL BISULFATE
     Indication: CEREBROVASCULAR ACCIDENT
     Dosage: 75 MG, UNK
     Route: 065
  4. BIAXIN [Concomitant]
     Active Substance: CLARITHROMYCIN
     Indication: LYME DISEASE
     Dosage: 250 MG, UNK
     Route: 065
  5. ATORVASTATIN CALCIUM. [Suspect]
     Active Substance: ATORVASTATIN CALCIUM
     Indication: BLOOD CHOLESTEROL INCREASED
     Dosage: 80 MG, UNK
     Route: 048
     Dates: end: 2018
  6. ATORVASTATIN CALCIUM. [Interacting]
     Active Substance: ATORVASTATIN CALCIUM
     Dosage: 20 MG, UNK
     Route: 065
  7. CLARITHROMYCIN. [Interacting]
     Active Substance: CLARITHROMYCIN
     Indication: PRODUCT USED FOR UNKNOWN INDICATION
     Dosage: 500 MG, UNK
     Route: 065

REACTIONS (17)
  - Loss of personal independence in daily activities [Not Recovered/Not Resolved]
  - Muscular weakness [Recovering/Resolving]
  - Memory impairment [Not Recovered/Not Resolved]
  - Dysarthria [Not Recovered/Not Resolved]
  - Drug interaction [Unknown]
  - Drug metabolising enzyme decreased [Unknown]
  - Feeling abnormal [Unknown]
  - Arthralgia [Unknown]
  - Vision blurred [Unknown]
  - Blood pressure increased [Unknown]
  - Anxiety [Not Recovered/Not Resolved]
  - Extra dose administered [Unknown]
  - Tremor [Not Recovered/Not Resolved]
  - Panic attack [Not Recovered/Not Resolved]
  - Gait disturbance [Not Recovered/Not Resolved]
  - Heart rate increased [Unknown]
  - Product prescribing error [Unknown]

NARRATIVE: CASE EVENT DATE: 20170911
